FAERS Safety Report 4898163-7 (Version None)
Quarter: 2006Q1

REPORT INFORMATION
  Report Type: 
  Country: None (occurrence: None)
  Receive Date: 20060127
  Receipt Date: 20060110
  Transmission Date: 20060701
  Serious: Yes (Death)
  Sender: FDA-Public Use
  Company Number: WAES 0601USA01655

PATIENT
  Age: 32 Year
  Sex: Male

DRUGS (4)
  1. CANCIDAS [Suspect]
     Indication: ZYGOMYCOSIS
     Dosage: INJ
  2. FLUCONAZOLE [Suspect]
     Indication: ZYGOMYCOSIS
  3. AMPHOTERICIN B [Suspect]
     Indication: ZYGOMYCOSIS
     Dosage: 3-10 MG/KG/DAILY/
  4. POSACONAZOLE [Suspect]
     Indication: ZYGOMYCOSIS
     Dosage: PO
     Route: 048

REACTIONS (5)
  - APLASIA PURE RED CELL [None]
  - DISEASE PROGRESSION [None]
  - ENDOCARDITIS [None]
  - SEPTIC EMBOLUS [None]
  - THERAPY NON-RESPONDER [None]
